FAERS Safety Report 8618888-7 (Version None)
Quarter: 2012Q3

REPORT INFORMATION
  Report Type: 
  Country: None (occurrence: None)
  Receive Date: 20120824
  Receipt Date: 20120816
  Transmission Date: 20120928
  Serious: Yes (Hospitalization)
  Sender: FDA-Public Use
  Company Number: US-UCBSA-063307

PATIENT
  Sex: Male
  Weight: 109.7 kg

DRUGS (10)
  1. KEPPRA XR [Suspect]
     Indication: GRAND MAL CONVULSION
     Dosage: IN AM
     Route: 048
     Dates: end: 20120807
  2. CEPHALEXIN [Concomitant]
     Dosage: STRENTH:500MG
     Dates: start: 20120801
  3. DILTIAZEM [Concomitant]
     Indication: CARDIAC DISORDER
     Dosage: THERAPY FROM:2-3 YEARS NOW
     Route: 048
  4. LISTERINE [Concomitant]
     Indication: TONGUE INJURY
  5. DIGOXIN [Concomitant]
     Indication: CARDIAC DISORDER
     Dosage: THERAPY FROM:2-3 YEARS NOW
     Route: 048
  6. SALINE [Concomitant]
     Indication: LACERATION
     Dosage: FOR WOUND WASH
  7. KEPPRA XR [Suspect]
     Dosage: INCREASED TO 2 PILLS IN THE AM
     Route: 048
     Dates: start: 20120808
  8. CEPHALEXIN [Concomitant]
     Indication: PHARYNGITIS STREPTOCOCCAL
     Dosage: DOSE STRENGTH: 500MG
     Dates: start: 20120701, end: 20120101
  9. HYDROCODONE BITARTRATE [Concomitant]
     Indication: OROPHARYNGEAL PAIN
     Dosage: 1 TABLET QID PRN
     Route: 048
     Dates: start: 20120801
  10. COUMADIN [Concomitant]
     Indication: ATRIAL FIBRILLATION
     Dosage: FROM 2009 OR 2010
     Route: 048

REACTIONS (9)
  - CONVULSION [None]
  - DYSPNOEA [None]
  - PHARYNGITIS STREPTOCOCCAL [None]
  - SWOLLEN TONGUE [None]
  - GLOSSODYNIA [None]
  - FATIGUE [None]
  - LACERATION [None]
  - THROAT CANCER [None]
  - BACK INJURY [None]
